FAERS Safety Report 8912053 (Version 1)
Quarter: 2012Q4

REPORT INFORMATION
  Report Type: 
  Country: GB (occurrence: GB)
  Receive Date: 20121116
  Receipt Date: 20121116
  Transmission Date: 20130627
  Serious: Yes (Other)
  Sender: FDA-Public Use
  Company Number: GB-AMGEN-GBRSP2012069966

PATIENT
  Age: 56 Year
  Sex: Female
  Weight: 63 kg

DRUGS (2)
  1. ENBREL [Suspect]
     Indication: RHEUMATOID ARTHRITIS
     Dosage: 50 mg, qwk
     Route: 058
     Dates: start: 20100226
  2. PARACETAMOL [Concomitant]
     Indication: ANALGESIC THERAPY
     Dosage: 1 g 4x/day when required
     Route: 048
     Dates: start: 2008

REACTIONS (4)
  - Diverticulitis [Recovering/Resolving]
  - Vaginal prolapse [Recovering/Resolving]
  - Rectal prolapse [Recovering/Resolving]
  - Bladder prolapse [Recovering/Resolving]
